FAERS Safety Report 5587116-1 (Version None)
Quarter: 2008Q1

REPORT INFORMATION
  Report Type: 
  Country: None (occurrence: None)
  Receive Date: 20080110
  Receipt Date: 20071231
  Transmission Date: 20080703
  Serious: Yes (Hospitalization)
  Sender: FDA-Public Use
  Company Number: B0502091A

PATIENT
  Age: 31 Year
  Sex: Female

DRUGS (18)
  1. ZOPHREN [Suspect]
     Dosage: 8MG SINGLE DOSE
     Route: 042
     Dates: start: 20071115, end: 20071115
  2. UROMITEXAN [Suspect]
     Dosage: 750MG SINGLE DOSE
     Route: 042
     Dates: start: 20071115, end: 20071115
  3. ENDOXAN [Suspect]
     Dosage: 750MG SINGLE DOSE
     Route: 042
     Dates: start: 20071115, end: 20071115
  4. BACTRIM [Suspect]
     Dosage: 1TAB PER DAY
     Route: 048
     Dates: start: 20071113
  5. SOLUPRED [Concomitant]
     Dosage: 35MG PER DAY
     Route: 048
     Dates: start: 20070101
  6. TRIATEC [Concomitant]
     Dosage: 5MG TWICE PER DAY
     Route: 048
     Dates: start: 20070101
  7. DIALYSIS [Concomitant]
     Dosage: 1UNIT THREE TIMES PER WEEK
  8. HEPARIN SODIUM [Concomitant]
     Route: 065
  9. CALCIDIA [Concomitant]
     Route: 065
  10. KAYEXALATE [Concomitant]
     Route: 065
  11. LASILIX [Concomitant]
     Route: 065
  12. RENAGEL [Concomitant]
     Route: 065
  13. ATARAX [Concomitant]
     Route: 065
  14. DI ANTALVIC [Concomitant]
     Route: 065
  15. FORLAX [Concomitant]
     Route: 065
  16. EDUCTYL [Concomitant]
     Route: 065
  17. INIPOMP [Concomitant]
     Route: 065
  18. LYRICA [Concomitant]
     Route: 065

REACTIONS (6)
  - ERYTHEMA [None]
  - HYPERTHERMIA [None]
  - LOCAL SWELLING [None]
  - PALMAR-PLANTAR ERYTHRODYSAESTHESIA SYNDROME [None]
  - PARAESTHESIA [None]
  - SWELLING FACE [None]
